FAERS Safety Report 8859803 (Version 1)
Quarter: 2012Q4

REPORT INFORMATION
  Report Type: 
  Country: DE (occurrence: DE)
  Receive Date: 20121025
  Receipt Date: 20121025
  Transmission Date: 20130627
  Serious: Yes (Hospitalization)
  Sender: FDA-Public Use
  Company Number: DE-009507513-1210DEU006755

PATIENT
  Age: 35 Year
  Sex: Male

DRUGS (1)
  1. POSACONAZOLE [Suspect]
     Indication: PROPHYLAXIS
     Dosage: 200 mg, tid
     Route: 048
     Dates: start: 2012

REACTIONS (1)
  - Drug resistance [Unknown]
